FAERS Safety Report 9491366 (Version 2)
Quarter: 2013Q3

REPORT INFORMATION
  Report Type: Report from Study
  Country: IT (occurrence: IT)
  Receive Date: 20130830
  Receipt Date: 20130830
  Transmission Date: 20140515
  Serious: Yes (Hospitalization)
  Sender: FDA-Public Use
  Company Number: PHHO2010IT07268

PATIENT
  Age: 71 Year
  Sex: Male
  Weight: 64 kg

DRUGS (7)
  1. ALISKIREN [Suspect]
     Indication: CARDIOVASCULAR DISORDER
     Route: 048
     Dates: start: 20100329, end: 20100510
  2. ALISKIREN [Suspect]
     Route: 048
     Dates: start: 20100623
  3. RAMIPRIL [Suspect]
     Indication: HYPERTENSION
     Dosage: 10 MG, UNK
     Dates: start: 2009, end: 20100510
  4. LOSARTAN POTASSIUM+HYDROCHLOROTHIAZIDE [Suspect]
     Indication: HYPERTENSION
     Dosage: 100/25 MG
     Dates: start: 20100204, end: 20100510
  5. INSULIN [Concomitant]
  6. ALLOPURINOL [Concomitant]
  7. OMEPRAZOLE [Concomitant]

REACTIONS (4)
  - Renal impairment [Recovering/Resolving]
  - Hypotension [Recovered/Resolved]
  - Asthenia [Recovered/Resolved]
  - Drug administration error [Recovered/Resolved]
